FAERS Safety Report 19016099 (Version 1)
Quarter: 2021Q1

REPORT INFORMATION
  Report Type: Spontaneous
  Country: US (occurrence: US)
  Receive Date: 20210317
  Receipt Date: 20210317
  Transmission Date: 20210420
  Serious: No
  Sender: FDA-Public Use
  Company Number: US-GLOBAL BLOOD THERAPEUTICS INC-US-GBT-20-04183

PATIENT
  Age: 66 Year
  Sex: Male

DRUGS (2)
  1. OXBRYTA [Suspect]
     Active Substance: VOXELOTOR
     Route: 048
     Dates: start: 2020
  2. OXBRYTA [Suspect]
     Active Substance: VOXELOTOR
     Indication: HAEMOGLOBIN C DISEASE
     Route: 048
     Dates: start: 202011, end: 2020

REACTIONS (2)
  - Intentional product misuse [Unknown]
  - Gout [Recovered/Resolved]

NARRATIVE: CASE EVENT DATE: 202011
